FAERS Safety Report 17195864 (Version 1)
Quarter: 2019Q4

REPORT INFORMATION
  Report Type: Spontaneous
  Country: US (occurrence: US)
  Receive Date: 20191202
  Receipt Date: 20191202
  Transmission Date: 20200122
  Serious: No
  Sender: FDA-Public Use
  Company Number: None

PATIENT
  Age: 69 Year
  Sex: Female
  Weight: 64.86 kg

DRUGS (4)
  1. PROLIA [Suspect]
     Active Substance: DENOSUMAB
     Indication: OSTEOPENIA
     Dosage: ?          QUANTITY:1 DF DOSAGE FORM;OTHER FREQUENCY:EVERY 6 MONTHS;?
     Route: 058
  2. VIT D 2000 IU QD [Concomitant]
  3. ?????? 40MG BID [Concomitant]
  4. SEVOTHYROXINE 100MCG DAILY [Concomitant]

REACTIONS (2)
  - Thyroid cancer [None]
  - Bone loss [None]

NARRATIVE: CASE EVENT DATE: 20190518
